FAERS Safety Report 6837792-8 (Version None)
Quarter: 2010Q3

REPORT INFORMATION
  Report Type: 
  Country: None (occurrence: None)
  Receive Date: 20100713
  Receipt Date: 20070518
  Transmission Date: 20110219
  Serious: No
  Sender: FDA-Public Use
  Company Number: US-PFIZER INC-2007041573

PATIENT
  Age: 56 Year
  Sex: Female
  Weight: 41.818 kg

DRUGS (6)
  1. CHANTIX [Suspect]
     Indication: SMOKING CESSATION THERAPY
     Dates: start: 20070501
  2. ALBUTEROL [Concomitant]
  3. COMBIVENT [Concomitant]
  4. IMURAN [Concomitant]
  5. PREMPRO [Concomitant]
  6. PREDNISOLONE [Concomitant]

REACTIONS (1)
  - CONSTIPATION [None]
